FAERS Safety Report 18283250 (Version 6)
Quarter: 2020Q4

REPORT INFORMATION
  Report Type: Spontaneous
  Country: US (occurrence: US)
  Receive Date: 20200918
  Receipt Date: 20201222
  Transmission Date: 20210113
  Serious: Yes (Other)
  Sender: FDA-Public Use
  Company Number: US-SUNOVION-2020SUN002691

PATIENT
  Sex: Female

DRUGS (4)
  1. LEVOPA (LEVODOPA) [Suspect]
     Active Substance: LEVODOPA
     Indication: PARKINSON^S DISEASE
     Route: 065
  2. NOURIANZ [Concomitant]
     Active Substance: ISTRADEFYLLINE
     Dosage: UNK
  3. KYNMOBI [Suspect]
     Active Substance: APOMORPHINE HYDROCHLORIDE
     Dosage: UNK (5 TIMES A DAY)
     Route: 060
  4. KYNMOBI [Suspect]
     Active Substance: APOMORPHINE HYDROCHLORIDE
     Indication: PARKINSON^S DISEASE
     Dosage: UNK
     Route: 060
     Dates: start: 20160822

REACTIONS (15)
  - Hypoaesthesia [Unknown]
  - Condition aggravated [Unknown]
  - Dystonia [Unknown]
  - Deep brain stimulation [Unknown]
  - Tremor [Unknown]
  - Myalgia [Unknown]
  - Therapy interrupted [Unknown]
  - Oral mucosal discolouration [Unknown]
  - Fatigue [Unknown]
  - Balance disorder [Unknown]
  - Torticollis [Unknown]
  - Conversion disorder [Unknown]
  - Feeling abnormal [Unknown]
  - Toe walking [Unknown]
  - Weight increased [Unknown]
